FAERS Safety Report 8853076 (Version 24)
Quarter: 2017Q1

REPORT INFORMATION
  Report Type: Report from Study
  Country: CA (occurrence: CA)
  Receive Date: 20121022
  Receipt Date: 20170220
  Transmission Date: 20170429
  Serious: Yes (Hospitalization, Other)
  Sender: FDA-Public Use
  Company Number: CA-ROCHE-1041781

PATIENT
  Age: 47 Year
  Sex: Female
  Weight: 176 kg

DRUGS (18)
  1. ACTEMRA [Suspect]
     Active Substance: TOCILIZUMAB
     Route: 042
     Dates: start: 20140919
  2. FENTANYL. [Concomitant]
     Active Substance: FENTANYL
     Indication: PAIN
     Route: 065
  3. THYROGEN [Suspect]
     Active Substance: THYROTROPIN ALFA
     Indication: PRODUCT USED FOR UNKNOWN INDICATION
     Route: 042
  4. PREDNISONE. [Concomitant]
     Active Substance: PREDNISONE
  5. FOLIC ACID. [Concomitant]
     Active Substance: FOLIC ACID
  6. ACTEMRA [Suspect]
     Active Substance: TOCILIZUMAB
     Route: 042
     Dates: start: 20151019, end: 20161219
  7. GABAPENTIN. [Concomitant]
     Active Substance: GABAPENTIN
     Indication: PAIN
     Route: 048
  8. ACTEMRA [Suspect]
     Active Substance: TOCILIZUMAB
     Indication: RHEUMATOID ARTHRITIS
     Route: 042
     Dates: start: 20111205
  9. ACTEMRA [Suspect]
     Active Substance: TOCILIZUMAB
     Route: 042
     Dates: start: 20141117
  10. RITUXAN [Suspect]
     Active Substance: RITUXIMAB
     Dosage: UNKNOWN DOSING DETAILS
     Route: 042
     Dates: start: 201108, end: 201110
  11. PLAQUENIL [Concomitant]
     Active Substance: HYDROXYCHLOROQUINE SULFATE
  12. RISEDRONATE [Concomitant]
     Active Substance: RISEDRONATE SODIUM
  13. AMITRIPTYLINE [Concomitant]
     Active Substance: AMITRIPTYLINE
  14. OMEPRAZOLE. [Concomitant]
     Active Substance: OMEPRAZOLE
     Route: 048
  15. BACLOFEN. [Concomitant]
     Active Substance: BACLOFEN
     Indication: MUSCLE SPASMS
     Route: 065
  16. RITUXAN [Suspect]
     Active Substance: RITUXIMAB
     Indication: RHEUMATOID ARTHRITIS
     Route: 042
     Dates: end: 20110906
  17. METHOTREXATE. [Suspect]
     Active Substance: METHOTREXATE
     Indication: PRODUCT USED FOR UNKNOWN INDICATION
     Route: 065
  18. ACTEMRA [Suspect]
     Active Substance: TOCILIZUMAB
     Indication: RHEUMATOID ARTHRITIS
     Route: 058
     Dates: start: 20170213

REACTIONS (35)
  - Oxygen saturation decreased [Unknown]
  - Rheumatoid arthritis [Recovered/Resolved]
  - Pain [Not Recovered/Not Resolved]
  - Eczema [Unknown]
  - Pharyngeal oedema [Unknown]
  - Blood calcium decreased [Recovered/Resolved]
  - Drug ineffective [Unknown]
  - Mass [Not Recovered/Not Resolved]
  - Furuncle [Unknown]
  - Infusion related reaction [Unknown]
  - Body temperature increased [Unknown]
  - Cellulitis [Recovering/Resolving]
  - Thyroid mass [Not Recovered/Not Resolved]
  - Rheumatoid arthritis [Recovered/Resolved]
  - Dizziness [Unknown]
  - Arthralgia [Not Recovered/Not Resolved]
  - Blood pressure diastolic decreased [Unknown]
  - Pneumonia [Recovering/Resolving]
  - Arthritis [Unknown]
  - Blood pressure fluctuation [Unknown]
  - Hepatic enzyme increased [Recovered/Resolved]
  - Hypertension [Unknown]
  - Lower respiratory tract infection [Not Recovered/Not Resolved]
  - Blood pressure systolic increased [Unknown]
  - Pain [Not Recovered/Not Resolved]
  - Pain in extremity [Not Recovered/Not Resolved]
  - Joint swelling [Not Recovered/Not Resolved]
  - Heart rate decreased [Unknown]
  - Musculoskeletal pain [Unknown]
  - Blood pressure increased [Not Recovered/Not Resolved]
  - Neck mass [Not Recovered/Not Resolved]
  - Hypotension [Unknown]
  - Peripheral swelling [Not Recovered/Not Resolved]
  - Malaise [Not Recovered/Not Resolved]
  - Fatigue [Unknown]

NARRATIVE: CASE EVENT DATE: 2012
